FAERS Safety Report 8787867 (Version 1)
Quarter: 2012Q4

REPORT INFORMATION
  Report Type: 
  Country: US (occurrence: US)
  Receive Date: 20120914
  Receipt Date: 20120914
  Transmission Date: 20130627
  Serious: Yes (Other)
  Sender: FDA-Public Use
  Company Number: US-VERTEX PHARMACEUTICAL INC.-AE-2012-004260

PATIENT
  Age: 46 None
  Sex: Female
  Weight: 101.36 kg

DRUGS (10)
  1. INCIVEK [Suspect]
     Indication: HEPATITIS C
     Route: 048
     Dates: start: 20120224, end: 20120518
  2. RIBAVIRIN [Concomitant]
     Indication: HEPATITIS C
     Route: 048
     Dates: start: 20120224, end: 20120318
  3. RIBAVIRIN [Concomitant]
     Route: 048
     Dates: start: 20120319
  4. PEGASYS [Concomitant]
     Indication: HEPATITIS C
     Route: 058
     Dates: start: 20120224
  5. FLORINEF [Concomitant]
     Indication: TACHYCARDIA
     Route: 048
     Dates: start: 20120224
  6. METFORMIN ER [Concomitant]
     Dates: start: 201109, end: 201206
  7. METFORMIN ER [Concomitant]
     Dates: start: 201206
  8. VICTOZA [Concomitant]
     Route: 058
     Dates: start: 2011, end: 201206
  9. LEVEMIR [Concomitant]
     Route: 058
     Dates: start: 201206
  10. NOVOLOG [Concomitant]
     Dates: start: 20120629

REACTIONS (15)
  - Anaemia [Not Recovered/Not Resolved]
  - Blood glucose increased [Not Recovered/Not Resolved]
  - Anal fungal infection [Recovered/Resolved]
  - Dizziness [Unknown]
  - Chest discomfort [Not Recovered/Not Resolved]
  - Cough [Not Recovered/Not Resolved]
  - Nasal congestion [Not Recovered/Not Resolved]
  - Nasopharyngitis [Unknown]
  - Fatigue [Not Recovered/Not Resolved]
  - Rash [Recovered/Resolved]
  - Diarrhoea [Not Recovered/Not Resolved]
  - Anal pruritus [Recovered/Resolved]
  - Anorectal discomfort [Recovered/Resolved]
  - Nausea [Recovered/Resolved]
  - Vomiting [Recovered/Resolved]
